FAERS Safety Report 22605814 (Version 4)
Quarter: 2024Q1

REPORT INFORMATION
  Report Type: Spontaneous
  Country: JP (occurrence: JP)
  Receive Date: 20230615
  Receipt Date: 20240321
  Transmission Date: 20240410
  Serious: No
  Sender: FDA-Public Use
  Company Number: JP-PFIZER INC-PV202300068585

PATIENT
  Age: 10 Year
  Sex: Female
  Weight: 16 kg

DRUGS (4)
  1. SOMATROPIN [Suspect]
     Active Substance: SOMATROPIN
     Indication: Growth hormone deficiency
     Dosage: 0.2 MG, DAILY, 7 TIMES WEEKLY
     Route: 058
     Dates: start: 20210823, end: 20210915
  2. MYSER [DIFLUPREDNATE] [Concomitant]
     Indication: Dermatitis atopic
     Dosage: UNK
  3. BETAMETHASONE DIPROPIONATE [Concomitant]
     Active Substance: BETAMETHASONE DIPROPIONATE
     Indication: Dermatitis atopic
     Dosage: UNK
  4. FLURANDRENOLIDE [Concomitant]
     Active Substance: FLURANDRENOLIDE
     Indication: Dermatitis atopic
     Dosage: 5 SHEETS, 1X/DAY
     Dates: start: 20210726

REACTIONS (3)
  - Dermatitis atopic [Recovered/Resolved]
  - Injection site pain [Recovered/Resolved]
  - Treatment noncompliance [Recovered/Resolved]

NARRATIVE: CASE EVENT DATE: 20210801
